FAERS Safety Report 7215397-7 (Version None)
Quarter: 2011Q1

REPORT INFORMATION
  Report Type: 
  Country: None (occurrence: None)
  Receive Date: 20110105
  Receipt Date: 20110105
  Transmission Date: 20110831
  Serious: Yes (Hospitalization)
  Sender: FDA-Public Use
  Company Number: None

PATIENT
  Sex: Female
  Weight: 73 kg

DRUGS (6)
  1. DAUNORUBICIN [Suspect]
     Dosage: 96 MG
  2. CYTARABINE [Suspect]
     Dosage: 70 MG
  3. PEG-L-ASPARAGINASE (K-H) [Suspect]
     Dosage: 4750 UNIT
  4. METHOTREXATE [Suspect]
     Dosage: 15 MG
  5. METHYLPREDNISOLONE [Suspect]
     Dosage: 1560 MG
  6. VINCRISTINE SULFATE [Suspect]
     Dosage: 4 MG

REACTIONS (16)
  - EAR PAIN [None]
  - HAEMATOCRIT DECREASED [None]
  - PLATELET COUNT DECREASED [None]
  - BLOOD GLUCOSE INCREASED [None]
  - OROPHARYNGEAL PAIN [None]
  - PYREXIA [None]
  - RED BLOOD CELL COUNT DECREASED [None]
  - CARDIAC ARREST [None]
  - HAEMOGLOBIN DECREASED [None]
  - DYSPNOEA [None]
  - HYPOTENSION [None]
  - TACHYCARDIA [None]
  - SEPTIC SHOCK [None]
  - ACUTE RESPIRATORY DISTRESS SYNDROME [None]
  - NEUTROPENIA [None]
  - HYPOXIA [None]
